FAERS Safety Report 12127890 (Version 3)
Quarter: 2019Q2

REPORT INFORMATION
  Report Type: Report from Study
  Country: US (occurrence: US)
  Receive Date: 20160229
  Receipt Date: 20190405
  Transmission Date: 20190711
  Serious: Yes (Hospitalization)
  Sender: FDA-Public Use
  Company Number: US-BIOGEN-2014BI122907

PATIENT
  Age: 53 Year
  Sex: Female

DRUGS (2)
  1. AVONEX [Suspect]
     Active Substance: INTERFERON BETA-1A
     Indication: MULTIPLE SCLEROSIS
     Route: 030
     Dates: start: 20130131
  2. AVONEX [Suspect]
     Active Substance: INTERFERON BETA-1A
     Route: 030
     Dates: start: 20130601

REACTIONS (11)
  - Pyrexia [Recovered/Resolved]
  - Restless legs syndrome [Recovered/Resolved]
  - Multiple sclerosis relapse [Recovered/Resolved]
  - Coma [Recovered/Resolved]
  - Urinary retention [Not Recovered/Not Resolved]
  - Pain [Not Recovered/Not Resolved]
  - Cystitis [Recovered/Resolved]
  - Urosepsis [Recovered/Resolved]
  - Confusional state [Not Recovered/Not Resolved]
  - Fall [Recovered/Resolved]
  - Gait disturbance [Not Recovered/Not Resolved]

NARRATIVE: CASE EVENT DATE: 201311
